FAERS Safety Report 5846735-5 (Version None)
Quarter: 2008Q3

REPORT INFORMATION
  Report Type: 
  Country: None (occurrence: None)
  Receive Date: 20080815
  Receipt Date: 20080807
  Transmission Date: 20090109
  Serious: Yes (Death)
  Sender: FDA-Public Use
  Company Number: DE-AVENTIS-200812049DE

PATIENT
  Age: 68 Year
  Sex: Male
  Weight: 68 kg

DRUGS (21)
  1. TAXOTERE [Suspect]
     Indication: METASTATIC GASTRIC CANCER
     Route: 041
     Dates: start: 20080716, end: 20080716
  2. FLUOROURACIL [Suspect]
     Indication: METASTATIC GASTRIC CANCER
     Route: 041
     Dates: start: 20080716, end: 20080716
  3. FOLINSAEURE [Suspect]
     Indication: METASTATIC GASTRIC CANCER
     Route: 041
     Dates: start: 20080716, end: 20080716
  4. OXALIPLATIN [Suspect]
     Indication: METASTATIC GASTRIC CANCER
     Route: 041
     Dates: start: 20080716, end: 20080716
  5. TAMSULOSIN HCL [Concomitant]
     Route: 048
     Dates: end: 20080725
  6. ASPIRIN [Concomitant]
     Route: 048
     Dates: end: 20080725
  7. ISOSORBIDE MONONITRATE [Concomitant]
     Route: 048
     Dates: end: 20080725
  8. MOLSIDOMIN [Concomitant]
     Route: 048
     Dates: end: 20080725
  9. DELIX                              /00885601/ [Concomitant]
     Route: 048
     Dates: end: 20080725
  10. NUTRIFLEX                          /01526401/ [Concomitant]
     Route: 042
     Dates: start: 20080324, end: 20080330
  11. STEROFUNDIN                        /00177701/ [Concomitant]
     Route: 042
     Dates: start: 20080324, end: 20080330
  12. FORTECORTIN                        /00016001/ [Concomitant]
     Route: 048
     Dates: start: 20080328, end: 20080407
  13. TAZOBAC                            /01173601/ [Concomitant]
     Dosage: DOSE: 4+0.5
     Route: 048
     Dates: start: 20080422, end: 20080427
  14. KEVATRIL [Concomitant]
     Dosage: DOSE: NOT REPORTED
     Route: 042
     Dates: start: 20080716, end: 20080716
  15. METOCLOPRAMIDE HYDROCHLORIDE [Concomitant]
     Route: 048
     Dates: start: 20080320, end: 20080725
  16. HEXORAL [Concomitant]
     Dosage: DOSE: NOT REPORTED
     Route: 048
     Dates: start: 20080324, end: 20080725
  17. BEPANTHEN                          /00178901/ [Concomitant]
     Dosage: DOSE: NOT REPORTED
     Route: 048
     Dates: start: 20080324, end: 20080725
  18. OXAZEPAM [Concomitant]
     Route: 048
     Dates: start: 20080320, end: 20080725
  19. NOVALGIN                           /00039501/ [Concomitant]
     Route: 048
     Dates: start: 20080422, end: 20080725
  20. SPASMEX                            /00376202/ [Concomitant]
     Route: 048
     Dates: start: 20080422, end: 20080725
  21. BALDRIAN-DISPERT [Concomitant]
     Dosage: DOSE: NOT REPORTED
     Route: 048
     Dates: start: 20080319, end: 20080725

REACTIONS (1)
  - MYOCARDIAL INFARCTION [None]
